FAERS Safety Report 4685115-5 (Version None)
Quarter: 2005Q2

REPORT INFORMATION
  Report Type: 
  Country: None (occurrence: None)
  Receive Date: 20050531
  Receipt Date: 20050222
  Transmission Date: 20051028
  Serious: No
  Sender: FDA-Public Use
  Company Number: FABR-10930

PATIENT
  Age: 37 Year
  Sex: Female
  Weight: 49 kg

DRUGS (3)
  1. FABRAZYME [Suspect]
     Indication: FABRY'S DISEASE
     Dosage: 49 MG Q2WKS IV
     Route: 042
     Dates: start: 20040602
  2. MOTRIN [Concomitant]
  3. ALLEGRA [Concomitant]

REACTIONS (3)
  - HEADACHE [None]
  - NASAL CONGESTION [None]
  - PALPITATIONS [None]
